FAERS Safety Report 9642842 (Version 2)
Quarter: 2013Q4

REPORT INFORMATION
  Report Type: Spontaneous
  Country: VE (occurrence: VE)
  Receive Date: 20131024
  Receipt Date: 20131104
  Transmission Date: 20140711
  Serious: Yes (Other)
  Sender: FDA-Public Use
  Company Number: PHHY2013VE118491

PATIENT
  Sex: Female

DRUGS (1)
  1. FORADIL [Suspect]
     Indication: ASTHMA
     Dosage: 12 UG, ONLY WHEN THE ASTHMA CRISIS WAS ONGOING
     Dates: start: 2010, end: 20101011

REACTIONS (1)
  - Asphyxia [Recovered/Resolved]
